FAERS Safety Report 8318946-0 (Version None)
Quarter: 2012Q2

REPORT INFORMATION
  Report Type: 
  Country: None (occurrence: None)
  Receive Date: 20120427
  Receipt Date: 20120418
  Transmission Date: 20120825
  Serious: Yes (Other)
  Sender: FDA-Public Use
  Company Number: ES-JNJFOC-20120412736

PATIENT
  Age: 43 Year
  Sex: Female

DRUGS (1)
  1. PALEXIA [Suspect]
     Indication: PAIN
     Route: 048
     Dates: start: 20120331, end: 20120401

REACTIONS (2)
  - AKATHISIA [None]
  - ANXIETY [None]
